FAERS Safety Report 12697408 (Version 3)
Quarter: 2016Q4

REPORT INFORMATION
  Report Type: Spontaneous
  Country: US (occurrence: US)
  Receive Date: 20160830
  Receipt Date: 20161130
  Transmission Date: 20170207
  Serious: Yes (Hospitalization, Other)
  Sender: FDA-Public Use
  Company Number: US-TAIHO ONCOLOGY INC-EU-2016-02151

PATIENT
  Age: 75 Year
  Sex: Male
  Weight: 73.28 kg

DRUGS (6)
  1. LEVAQUIN [Concomitant]
     Active Substance: LEVOFLOXACIN
  2. CHLORTALIDONE [Concomitant]
     Active Substance: CHLORTHALIDONE
     Route: 048
  3. PROCHLORPERAZINE MALEATE. [Concomitant]
     Active Substance: PROCHLORPERAZINE MALEATE
     Route: 048
  4. HYDROCORTISONE. [Concomitant]
     Active Substance: HYDROCORTISONE
     Route: 061
  5. LONSURF [Suspect]
     Active Substance: TIPIRACIL HYDROCHLORIDE\TRIFLURIDINE
     Indication: COLON CANCER
     Dosage: CYCLE 7 INITIATED ON 09/SEP/2016
     Route: 048
     Dates: start: 20160301
  6. ENALAPRIL MALEATE. [Concomitant]
     Active Substance: ENALAPRIL MALEATE
     Route: 048

REACTIONS (17)
  - Nausea [Not Recovered/Not Resolved]
  - Oedema peripheral [Not Recovered/Not Resolved]
  - Dyspnoea exertional [Recovering/Resolving]
  - Productive cough [Recovering/Resolving]
  - Agranulocytosis [Recovered/Resolved]
  - Disease progression [Unknown]
  - Hypoalbuminaemia [Not Recovered/Not Resolved]
  - Haematuria [Unknown]
  - Neutropenia [Recovered/Resolved]
  - Malignant pleural effusion [Recovered/Resolved]
  - Catheter site infection [Not Recovered/Not Resolved]
  - Decreased appetite [Unknown]
  - Flank pain [Not Recovered/Not Resolved]
  - Weight decreased [Recovered/Resolved]
  - Asthenia [Unknown]
  - Abdominal pain [Not Recovered/Not Resolved]
  - Nocturia [Not Recovered/Not Resolved]

NARRATIVE: CASE EVENT DATE: 2016
